FAERS Safety Report 23284456 (Version 2)
Quarter: 2024Q1

REPORT INFORMATION
  Report Type: Spontaneous
  Country: US (occurrence: US)
  Receive Date: 20231211
  Receipt Date: 20240126
  Transmission Date: 20240410
  Serious: No
  Sender: FDA-Public Use
  Company Number: US-PFIZER INC-202300410865

PATIENT
  Age: 77 Year
  Sex: Female

DRUGS (1)
  1. PAXLOVID [Suspect]
     Active Substance: NIRMATRELVIR\RITONAVIR
     Indication: COVID-19 treatment
     Dosage: 2 DF, 2X/DAY FOR 5 DAYS
     Route: 048

REACTIONS (4)
  - Incorrect dose administered [Unknown]
  - Retching [Unknown]
  - Dysgeusia [Not Recovered/Not Resolved]
  - Vomiting [Unknown]
